FAERS Safety Report 6526739-X (Version None)
Quarter: 2009Q4

REPORT INFORMATION
  Report Type: 
  Country: None (occurrence: None)
  Receive Date: 20091230
  Receipt Date: 20091222
  Transmission Date: 20100525
  Serious: Yes (Hospitalization, Other)
  Sender: FDA-Public Use
  Company Number: 2009S1009135

PATIENT
  Age: 51 Year
  Sex: Male
  Weight: 74.3899 kg

DRUGS (2)
  1. PHOSPHOSODA FLAVOR NOT SPECIFIED [Suspect]
     Indication: COLONOSCOPY
     Dosage: 90 ML; TOTAL; PO
     Route: 048
     Dates: start: 20011216
  2. PRINIVIL /00894001/ [Concomitant]

REACTIONS (7)
  - CHEST DISCOMFORT [None]
  - CONDITION AGGRAVATED [None]
  - HEADACHE [None]
  - HYPERTENSION [None]
  - NAUSEA [None]
  - PROCEDURAL HYPOTENSION [None]
  - RENAL FAILURE ACUTE [None]
